FAERS Safety Report 16250663 (Version 1)
Quarter: 2019Q2

REPORT INFORMATION
  Report Type: Spontaneous
  Country: US (occurrence: US)
  Receive Date: 20190426
  Receipt Date: 20190426
  Transmission Date: 20190711
  Serious: Yes (Hospitalization, Disabling, Other)
  Sender: FDA-Public Use
  Company Number: None

PATIENT
  Age: 91 Year
  Sex: Female
  Weight: 54 kg

DRUGS (3)
  1. SOMADERM TRANSDERMAL MAXIMUM STRENGTH HGH GEL [Suspect]
     Active Substance: HOMEOPATHICS
     Indication: PREMATURE AGEING
     Route: 061
     Dates: start: 20180811, end: 20180825
  2. GABAPENTIN. [Concomitant]
     Active Substance: GABAPENTIN
  3. LISINOPRIL. [Concomitant]
     Active Substance: LISINOPRIL

REACTIONS (5)
  - Nightmare [None]
  - Cognitive disorder [None]
  - Amnesia [None]
  - Aphasia [None]
  - Cerebrovascular accident [None]

NARRATIVE: CASE EVENT DATE: 20180908
